FAERS Safety Report 7925842-7 (Version None)
Quarter: 2011Q4

REPORT INFORMATION
  Report Type: 
  Country: None (occurrence: None)
  Receive Date: 20111118
  Receipt Date: 20110413
  Transmission Date: 20120403
  Serious: No
  Sender: FDA-Public Use
  Company Number: US-AMGEN-USASP2011017567

PATIENT
  Age: 65 Year
  Sex: Female

DRUGS (2)
  1. ENBREL [Suspect]
     Indication: PSORIASIS
  2. ENBREL [Suspect]
     Indication: PSORIATIC ARTHROPATHY
     Dosage: 50 MG, QWK
     Route: 058
     Dates: start: 20041230

REACTIONS (8)
  - LARYNGITIS [None]
  - GASTROENTERITIS VIRAL [None]
  - DRUG EFFECT DECREASED [None]
  - PSORIASIS [None]
  - INJECTION SITE PAIN [None]
  - INJECTION SITE MASS [None]
  - DIARRHOEA [None]
  - VIRAL INFECTION [None]
